FAERS Safety Report 13396086 (Version 1)
Quarter: 2017Q2

REPORT INFORMATION
  Report Type: Spontaneous
  Country: CH (occurrence: CH)
  Receive Date: 20170403
  Receipt Date: 20170403
  Transmission Date: 20170830
  Serious: Yes (Other)
  Sender: FDA-Public Use
  Company Number: CH-LPDUSPRD-20170358

PATIENT
  Age: 21 Year
  Sex: Female

DRUGS (1)
  1. FERINJECT [Suspect]
     Active Substance: FERRIC CARBOXYMALTOSE
     Dosage: 500MG
     Route: 041
     Dates: start: 20130208, end: 20130208

REACTIONS (3)
  - Respiratory distress [Unknown]
  - Feeling hot [Unknown]
  - Nervousness [Unknown]

NARRATIVE: CASE EVENT DATE: 20130208
